FAERS Safety Report 4391464-0 (Version None)
Quarter: 2004Q3

REPORT INFORMATION
  Report Type: 
  Country: None (occurrence: None)
  Receive Date: 20040707
  Receipt Date: 20040624
  Transmission Date: 20050211
  Serious: Yes (Hospitalization)
  Sender: FDA-Public Use
  Company Number: ES-GLAXOSMITHKLINE-B0337417A

PATIENT
  Age: 26 Year
  Sex: Female

DRUGS (6)
  1. SEROXAT [Suspect]
     Dosage: 40MG PER DAY
     Route: 048
     Dates: start: 20031111, end: 20031128
  2. DEPAKENE [Suspect]
     Dosage: 1G PER DAY
     Route: 048
     Dates: start: 20031111, end: 20031128
  3. TRILEPTAL [Suspect]
     Dosage: 600MG PER DAY
     Route: 048
     Dates: start: 20031111, end: 20031128
  4. RISPERDAL [Suspect]
     Dosage: 3ML PER DAY
     Route: 048
     Dates: start: 20031111, end: 20031128
  5. SEROQUEL [Suspect]
     Dosage: 400MG PER DAY
     Route: 048
     Dates: start: 20031111, end: 20031128
  6. DEPRAX [Suspect]
     Dosage: 100MCG PER DAY
     Route: 048
     Dates: start: 20031111, end: 20031128

REACTIONS (4)
  - AGGRESSION [None]
  - FATIGUE [None]
  - SLEEP APNOEA SYNDROME [None]
  - SOMNOLENCE [None]
